FAERS Safety Report 11048499 (Version 1)
Quarter: 2015Q2

REPORT INFORMATION
  Report Type: Spontaneous
  Country: US (occurrence: US)
  Receive Date: 20150420
  Receipt Date: 20150420
  Transmission Date: 20150821
  Serious: No
  Sender: FDA-Public Use
  Company Number: US-ABBVIE-14P-163-1328091-00

PATIENT
  Age: 15 Year
  Sex: Female
  Weight: 73.55 kg

DRUGS (1)
  1. LUPRON DEPOT-PED [Suspect]
     Active Substance: LEUPROLIDE ACETATE
     Indication: GENDER IDENTITY DISORDER
     Route: 030
     Dates: start: 20141218

REACTIONS (5)
  - Injection site papule [Not Recovered/Not Resolved]
  - Off label use [Not Recovered/Not Resolved]
  - Injection site abscess [Unknown]
  - Injection site pain [Not Recovered/Not Resolved]
  - Injection site swelling [Not Recovered/Not Resolved]

NARRATIVE: CASE EVENT DATE: 20141218
